FAERS Safety Report 8235485-6 (Version None)
Quarter: 2012Q1

REPORT INFORMATION
  Report Type: 
  Country: None (occurrence: None)
  Receive Date: 20120326
  Receipt Date: 20120320
  Transmission Date: 20120608
  Serious: No
  Sender: FDA-Public Use
  Company Number: US-PFIZER INC-2012073276

PATIENT
  Sex: Female

DRUGS (3)
  1. NORGESTREL AND ETHINYL ESTRADIOL [Suspect]
     Indication: OFF LABEL USE
     Dosage: UNK
     Route: 048
  2. NORGESTREL AND ETHINYL ESTRADIOL [Suspect]
     Indication: FIBROCYSTIC BREAST DISEASE
  3. NORGESTREL AND ETHINYL ESTRADIOL [Suspect]
     Indication: MENORRHAGIA

REACTIONS (3)
  - MENORRHAGIA [None]
  - BREAST PAIN [None]
  - PRODUCT QUALITY ISSUE [None]
